FAERS Safety Report 8618634-7 (Version None)
Quarter: 2012Q3

REPORT INFORMATION
  Report Type: 
  Country: None (occurrence: None)
  Receive Date: 20120814
  Receipt Date: 20120814
  Transmission Date: 20120928
  Serious: Yes (Other)
  Sender: FDA-Public Use
  Company Number: None

PATIENT
  Age: 64 Year
  Sex: Female
  Weight: 70.3075 kg

DRUGS (1)
  1. ZEMPLAR [Suspect]
     Indication: PARATHYROID DISORDER
     Dosage: 1 BY MOUTH MWF	PO
     Route: 048
     Dates: start: 20120621, end: 20120812

REACTIONS (7)
  - HYPOTENSION [None]
  - HEART RATE IRREGULAR [None]
  - NAUSEA [None]
  - VOMITING [None]
  - DIARRHOEA [None]
  - RHINORRHOEA [None]
  - DECREASED APPETITE [None]
